FAERS Safety Report 6426833-8 (Version None)
Quarter: 2009Q4

REPORT INFORMATION
  Report Type: 
  Country: None (occurrence: None)
  Receive Date: 20091030
  Receipt Date: 20091016
  Transmission Date: 20100525
  Serious: Yes (Hospitalization)
  Sender: FDA-Public Use
  Company Number: 2009AC000217

PATIENT
  Age: 79 Year
  Sex: Male

DRUGS (28)
  1. DIGOXIN [Suspect]
     Dosage: 0.125 MG, QD, PO
     Route: 048
     Dates: start: 20080301
  2. APRESOLINE [Concomitant]
  3. LIPITOR [Concomitant]
  4. PROSCAR [Concomitant]
  5. NEXIUM [Concomitant]
  6. ASPIRIN [Concomitant]
  7. IMDUR [Concomitant]
  8. COUMADIN [Concomitant]
  9. COREG [Concomitant]
  10. LASIX [Concomitant]
  11. ALDACTONE [Concomitant]
  12. K-DUR [Concomitant]
  13. GLUCOTROL [Concomitant]
  14. GENUVIA [Concomitant]
  15. CHROMAGEN [Concomitant]
  16. FLOMAX [Concomitant]
  17. HYDRALAZINE HCL [Concomitant]
  18. ISOSORBIDE MONINITRATE [Concomitant]
  19. JANUVIA [Concomitant]
  20. NITROSTAT [Concomitant]
  21. PROSCAR [Concomitant]
  22. PRINIVAL [Concomitant]
  23. PROCARDIA XL [Concomitant]
  24. GLUCOPHAGE [Concomitant]
  25. DETROL LA [Concomitant]
  26. FINASERIDE [Concomitant]
  27. LANTUS [Concomitant]
  28. CARVEDILOL [Concomitant]

REACTIONS (25)
  - ANAEMIA [None]
  - ANGINA PECTORIS [None]
  - ATRIAL FIBRILLATION [None]
  - CARDIAC FAILURE CONGESTIVE [None]
  - CARDIOACTIVE DRUG LEVEL INCREASED [None]
  - CARDIOMYOPATHY [None]
  - CEREBROVASCULAR ACCIDENT [None]
  - CEREBROVASCULAR DISORDER [None]
  - CHEST PAIN [None]
  - CORONARY ARTERY DISEASE [None]
  - COUGH [None]
  - DIABETES MELLITUS [None]
  - DYSPNOEA [None]
  - GASTROINTESTINAL HAEMORRHAGE [None]
  - HYPERKALAEMIA [None]
  - HYPERLIPIDAEMIA [None]
  - HYPERTENSION [None]
  - MULTIPLE INJURIES [None]
  - MYOCARDIAL INFARCTION [None]
  - NEPHROLITHIASIS [None]
  - PERIPHERAL VASCULAR DISORDER [None]
  - PNEUMONIA [None]
  - PULMONARY OEDEMA [None]
  - RENAL FAILURE CHRONIC [None]
  - VERTIGO [None]
